FAERS Safety Report 19590517 (Version 1)
Quarter: 2021Q3

REPORT INFORMATION
  Report Type: Report from Study
  Country: RO (occurrence: RO)
  Receive Date: 20210721
  Receipt Date: 20210721
  Transmission Date: 20211014
  Serious: Yes (Other)
  Sender: FDA-Public Use
  Company Number: RO-MYLANLABS-2021M1043723

PATIENT
  Age: 42 Year
  Sex: Female

DRUGS (3)
  1. DEXAMETHASONE. [Suspect]
     Active Substance: DEXAMETHASONE
     Indication: PLASMA CELL MYELOMA
     Dosage: UNK
     Route: 065
     Dates: start: 201809
  2. DARZALEX [Suspect]
     Active Substance: DARATUMUMAB
     Indication: PLASMA CELL MYELOMA
     Dosage: UNK
     Route: 065
     Dates: start: 201809
  3. LENALIDOMIDE [Suspect]
     Active Substance: LENALIDOMIDE
     Indication: PLASMA CELL MYELOMA
     Dosage: UNK
     Route: 065
     Dates: start: 201809

REACTIONS (3)
  - Neutropenia [Unknown]
  - Pleural neoplasm [Unknown]
  - Diarrhoea [Unknown]

NARRATIVE: CASE EVENT DATE: 201812
